FAERS Safety Report 6482840-0 (Version None)
Quarter: 2009Q4

REPORT INFORMATION
  Report Type: 
  Country: None (occurrence: None)
  Receive Date: 20091209
  Receipt Date: 20091026
  Transmission Date: 20100525
  Serious: No
  Sender: FDA-Public Use
  Company Number: US-AMGEN-KDL371140

PATIENT
  Sex: Female

DRUGS (1)
  1. ENBREL [Suspect]
     Indication: PSORIATIC ARTHROPATHY
     Route: 058
     Dates: start: 20090728

REACTIONS (7)
  - DYSURIA [None]
  - LACRIMATION INCREASED [None]
  - LARYNGITIS [None]
  - MICTURITION URGENCY [None]
  - MUSCLE SPASMS [None]
  - POLLAKIURIA [None]
  - PRODUCTIVE COUGH [None]
